FAERS Safety Report 7037091-8 (Version None)
Quarter: 2010Q4

REPORT INFORMATION
  Report Type: 
  Country: None (occurrence: None)
  Receive Date: 20101011
  Receipt Date: 20101001
  Transmission Date: 20110411
  Serious: Yes (Hospitalization)
  Sender: FDA-Public Use
  Company Number: PHHO2010DE14955

PATIENT
  Sex: Female
  Weight: 40.1 kg

DRUGS (2)
  1. AFINITOR [Suspect]
     Indication: PANCREATIC CARCINOMA
     Dosage: 5 MG / DAY
     Route: 048
     Dates: start: 20100624, end: 20100930
  2. GEMCITABINE [Suspect]
     Indication: PANCREATIC CARCINOMA
     Dosage: UNK
     Dates: start: 20100624, end: 20100929

REACTIONS (1)
  - JAUNDICE [None]
